FAERS Safety Report 10440650 (Version 1)
Quarter: 2014Q3

REPORT INFORMATION
  Report Type: Spontaneous
  Country: US (occurrence: None)
  Receive Date: 20140908
  Receipt Date: 20140908
  Transmission Date: 20150326
  Serious: Yes (Other)
  Sender: FDA-Public Use
  Company Number: None

PATIENT
  Age: 47 Year
  Sex: Male
  Weight: 83.92 kg

DRUGS (1)
  1. ANUCORT-HC [Suspect]
     Active Substance: HYDROCORTISONE ACETATE
     Indication: HAEMORRHOIDS
     Dates: start: 20140904, end: 20140904

REACTIONS (1)
  - Hypersensitivity [None]

NARRATIVE: CASE EVENT DATE: 20140904
